FAERS Safety Report 9696481 (Version 1)
Quarter: 2013Q4

REPORT INFORMATION
  Report Type: Report from Study
  Country: US (occurrence: US)
  Receive Date: 20131119
  Receipt Date: 20131119
  Transmission Date: 20140711
  Serious: Yes (Other)
  Sender: FDA-Public Use
  Company Number: US-BAXTER-2013BAX044821

PATIENT
  Age: 76 Year
  Sex: Female
  Weight: 66.22 kg

DRUGS (11)
  1. GAMMAGARD LIQUID [Suspect]
     Indication: IMMUNODEFICIENCY COMMON VARIABLE
     Route: 058
     Dates: start: 20130628, end: 20130628
  2. GAMMAGARD LIQUID [Suspect]
     Route: 058
     Dates: start: 20130704, end: 20130704
  3. GAMMAGARD LIQUID [Suspect]
     Route: 058
     Dates: start: 20130628, end: 20130628
  4. GAMMAGARD LIQUID [Suspect]
     Route: 058
     Dates: start: 20130704, end: 20130704
  5. DIOVAN [Concomitant]
     Indication: HYPERTENSION
     Route: 048
  6. BABY ASPIRIN [Concomitant]
     Indication: PRODUCT USED FOR UNKNOWN INDICATION
     Route: 048
  7. LEVOTHYROXINE [Concomitant]
     Indication: HYPOTHYROIDISM
     Route: 048
  8. NEXIUM [Concomitant]
     Indication: GASTROOESOPHAGEAL REFLUX DISEASE
     Route: 048
  9. MAGNESIUM [Concomitant]
     Indication: BLOOD MAGNESIUM DECREASED
     Route: 048
  10. SYMBICORT [Concomitant]
     Indication: ASTHMA
     Dosage: 180/4.5
  11. QVAR [Concomitant]
     Indication: ASTHMA

REACTIONS (11)
  - Sinusitis [Recovered/Resolved]
  - Sinus disorder [Unknown]
  - Polyp [Unknown]
  - Mental impairment [Recovered/Resolved]
  - Gingival pain [Recovered/Resolved]
  - Throat irritation [Recovered/Resolved]
  - Sinus headache [Recovered/Resolved]
  - Pain [Unknown]
  - Malaise [Recovered/Resolved]
  - Headache [Recovered/Resolved]
  - Diarrhoea [Unknown]
